FAERS Safety Report 25220128 (Version 1)
Quarter: 2025Q2

REPORT INFORMATION
  Report Type: Spontaneous
  Country: GB (occurrence: GB)
  Receive Date: 20250421
  Receipt Date: 20250421
  Transmission Date: 20250717
  Serious: Yes (Other)
  Sender: MYLAN
  Company Number: GB-MHRA-TPP21069820C9215960YC1744371705548

PATIENT
  Age: 93 Year
  Sex: Female
  Weight: 73 kg

DRUGS (68)
  1. DOXYCYCLINE [Suspect]
     Active Substance: DOXYCYCLINE
     Indication: Product used for unknown indication
     Dosage: 2 DOSAGE FORM, QD (100MG CAPSULES. TAKE TWO CAPSULES ON THE FIRST DAY, AND THEN ON...)
     Route: 065
     Dates: start: 20250407
  2. DOXYCYCLINE [Suspect]
     Active Substance: DOXYCYCLINE
     Dosage: 2 DOSAGE FORM, QD (100MG CAPSULES. TAKE TWO CAPSULES ON THE FIRST DAY, AND THEN ON...)
     Dates: start: 20250407
  3. DOXYCYCLINE [Suspect]
     Active Substance: DOXYCYCLINE
     Dosage: 2 DOSAGE FORM, QD (100MG CAPSULES. TAKE TWO CAPSULES ON THE FIRST DAY, AND THEN ON...)
     Dates: start: 20250407
  4. DOXYCYCLINE [Suspect]
     Active Substance: DOXYCYCLINE
     Dosage: 2 DOSAGE FORM, QD (100MG CAPSULES. TAKE TWO CAPSULES ON THE FIRST DAY, AND THEN ON...)
     Route: 065
     Dates: start: 20250407
  5. DOXYCYCLINE [Suspect]
     Active Substance: DOXYCYCLINE
     Route: 065
  6. DOXYCYCLINE [Suspect]
     Active Substance: DOXYCYCLINE
  7. DOXYCYCLINE [Suspect]
     Active Substance: DOXYCYCLINE
  8. DOXYCYCLINE [Suspect]
     Active Substance: DOXYCYCLINE
     Route: 065
  9. CHLORAMPHENICOL [Concomitant]
     Active Substance: CHLORAMPHENICOL
     Indication: Ill-defined disorder
     Dates: start: 20250327, end: 20250401
  10. CHLORAMPHENICOL [Concomitant]
     Active Substance: CHLORAMPHENICOL
     Route: 047
     Dates: start: 20250327, end: 20250401
  11. CHLORAMPHENICOL [Concomitant]
     Active Substance: CHLORAMPHENICOL
     Route: 047
     Dates: start: 20250327, end: 20250401
  12. CHLORAMPHENICOL [Concomitant]
     Active Substance: CHLORAMPHENICOL
     Dates: start: 20250327, end: 20250401
  13. AMOXICILLIN [Concomitant]
     Active Substance: AMOXICILLIN
     Indication: Ill-defined disorder
     Dosage: 1 DOSAGE FORM, TID (TAKE ONE 3 TIMES/DAY)
     Dates: start: 20250407
  14. AMOXICILLIN [Concomitant]
     Active Substance: AMOXICILLIN
     Dosage: 1 DOSAGE FORM, TID (TAKE ONE 3 TIMES/DAY)
     Route: 065
     Dates: start: 20250407
  15. AMOXICILLIN [Concomitant]
     Active Substance: AMOXICILLIN
     Dosage: 1 DOSAGE FORM, TID (TAKE ONE 3 TIMES/DAY)
     Route: 065
     Dates: start: 20250407
  16. AMOXICILLIN [Concomitant]
     Active Substance: AMOXICILLIN
     Dosage: 1 DOSAGE FORM, TID (TAKE ONE 3 TIMES/DAY)
     Dates: start: 20250407
  17. PREDNISOLONE [Concomitant]
     Active Substance: PREDNISOLONE
     Indication: Ill-defined disorder
     Dosage: 8 DOSAGE FORM, QD (EIGHT TO BE TAKEN ONCE DAILY FOR FIVE DAYS)
     Dates: start: 20250407
  18. PREDNISOLONE [Concomitant]
     Active Substance: PREDNISOLONE
     Dosage: 8 DOSAGE FORM, QD (EIGHT TO BE TAKEN ONCE DAILY FOR FIVE DAYS)
     Route: 065
     Dates: start: 20250407
  19. PREDNISOLONE [Concomitant]
     Active Substance: PREDNISOLONE
     Dosage: 8 DOSAGE FORM, QD (EIGHT TO BE TAKEN ONCE DAILY FOR FIVE DAYS)
     Route: 065
     Dates: start: 20250407
  20. PREDNISOLONE [Concomitant]
     Active Substance: PREDNISOLONE
     Dosage: 8 DOSAGE FORM, QD (EIGHT TO BE TAKEN ONCE DAILY FOR FIVE DAYS)
     Dates: start: 20250407
  21. ALENDRONIC ACID [Concomitant]
     Active Substance: ALENDRONIC ACID
     Indication: Ill-defined disorder
     Dosage: 1 DOSAGE FORM, QW (TAKE ONE WEEKLY)
     Dates: start: 20241020
  22. ALENDRONIC ACID [Concomitant]
     Active Substance: ALENDRONIC ACID
     Dosage: 1 DOSAGE FORM, QW (TAKE ONE WEEKLY)
     Route: 065
     Dates: start: 20241020
  23. ALENDRONIC ACID [Concomitant]
     Active Substance: ALENDRONIC ACID
     Dosage: 1 DOSAGE FORM, QW (TAKE ONE WEEKLY)
     Route: 065
     Dates: start: 20241020
  24. ALENDRONIC ACID [Concomitant]
     Active Substance: ALENDRONIC ACID
     Dosage: 1 DOSAGE FORM, QW (TAKE ONE WEEKLY)
     Dates: start: 20241020
  25. AMITRIPTYLINE HYDROCHLORIDE [Concomitant]
     Active Substance: AMITRIPTYLINE HYDROCHLORIDE
     Indication: Ill-defined disorder
  26. AMITRIPTYLINE HYDROCHLORIDE [Concomitant]
     Active Substance: AMITRIPTYLINE HYDROCHLORIDE
     Route: 065
  27. AMITRIPTYLINE HYDROCHLORIDE [Concomitant]
     Active Substance: AMITRIPTYLINE HYDROCHLORIDE
     Route: 065
  28. AMITRIPTYLINE HYDROCHLORIDE [Concomitant]
     Active Substance: AMITRIPTYLINE HYDROCHLORIDE
  29. AMLODIPINE [Concomitant]
     Active Substance: AMLODIPINE BESYLATE
     Indication: Ill-defined disorder
     Dosage: 1 DOSAGE FORM, QD (TAKE ONE DAILY)
     Dates: start: 20241020
  30. AMLODIPINE [Concomitant]
     Active Substance: AMLODIPINE BESYLATE
     Dosage: 1 DOSAGE FORM, QD (TAKE ONE DAILY)
     Route: 065
     Dates: start: 20241020
  31. AMLODIPINE [Concomitant]
     Active Substance: AMLODIPINE BESYLATE
     Dosage: 1 DOSAGE FORM, QD (TAKE ONE DAILY)
     Route: 065
     Dates: start: 20241020
  32. AMLODIPINE [Concomitant]
     Active Substance: AMLODIPINE BESYLATE
     Dosage: 1 DOSAGE FORM, QD (TAKE ONE DAILY)
     Dates: start: 20241020
  33. BENDROFLUMETHIAZIDE [Concomitant]
     Active Substance: BENDROFLUMETHIAZIDE
     Indication: Ill-defined disorder
     Dosage: 1 DOSAGE FORM, QD (ONE TO BE TAKEN DAILY)
     Dates: start: 20241020
  34. BENDROFLUMETHIAZIDE [Concomitant]
     Active Substance: BENDROFLUMETHIAZIDE
     Dosage: 1 DOSAGE FORM, QD (ONE TO BE TAKEN DAILY)
     Route: 065
     Dates: start: 20241020
  35. BENDROFLUMETHIAZIDE [Concomitant]
     Active Substance: BENDROFLUMETHIAZIDE
     Dosage: 1 DOSAGE FORM, QD (ONE TO BE TAKEN DAILY)
     Route: 065
     Dates: start: 20241020
  36. BENDROFLUMETHIAZIDE [Concomitant]
     Active Substance: BENDROFLUMETHIAZIDE
     Dosage: 1 DOSAGE FORM, QD (ONE TO BE TAKEN DAILY)
     Dates: start: 20241020
  37. Clinitas [Concomitant]
     Indication: Ill-defined disorder
  38. Clinitas [Concomitant]
     Route: 065
  39. Clinitas [Concomitant]
     Route: 065
  40. Clinitas [Concomitant]
  41. BECLOMETHASONE\FORMOTEROL [Concomitant]
     Active Substance: BECLOMETHASONE\FORMOTEROL
     Indication: Ill-defined disorder
     Dosage: 2 DOSAGE FORM, BID (TWO PUFFS TWICE DAILY)
     Dates: start: 20241020
  42. BECLOMETHASONE\FORMOTEROL [Concomitant]
     Active Substance: BECLOMETHASONE\FORMOTEROL
     Dosage: 2 DOSAGE FORM, BID (TWO PUFFS TWICE DAILY)
     Route: 065
     Dates: start: 20241020
  43. BECLOMETHASONE\FORMOTEROL [Concomitant]
     Active Substance: BECLOMETHASONE\FORMOTEROL
     Dosage: 2 DOSAGE FORM, BID (TWO PUFFS TWICE DAILY)
     Route: 065
     Dates: start: 20241020
  44. BECLOMETHASONE\FORMOTEROL [Concomitant]
     Active Substance: BECLOMETHASONE\FORMOTEROL
     Dosage: 2 DOSAGE FORM, BID (TWO PUFFS TWICE DAILY)
     Dates: start: 20241020
  45. LACTULOSE [Concomitant]
     Active Substance: LACTULOSE
     Indication: Ill-defined disorder
     Dosage: 15 MILLILITER, BID (15ML TWICE DAILY)
     Dates: start: 20241020
  46. LACTULOSE [Concomitant]
     Active Substance: LACTULOSE
     Dosage: 15 MILLILITER, BID (15ML TWICE DAILY)
     Route: 065
     Dates: start: 20241020
  47. LACTULOSE [Concomitant]
     Active Substance: LACTULOSE
     Dosage: 15 MILLILITER, BID (15ML TWICE DAILY)
     Route: 065
     Dates: start: 20241020
  48. LACTULOSE [Concomitant]
     Active Substance: LACTULOSE
     Dosage: 15 MILLILITER, BID (15ML TWICE DAILY)
     Dates: start: 20241020
  49. POLYETHYLENE GLYCOL 3350\POTASSIUM CHLORIDE\SODIUM BICARBONATE\SODIUM [Concomitant]
     Active Substance: POLYETHYLENE GLYCOL 3350\POTASSIUM CHLORIDE\SODIUM BICARBONATE\SODIUM CHLORIDE
     Indication: Ill-defined disorder
     Dosage: UNK UNK, BID (2-3X SACHET TO BE TAKEN TWICE DAILY)
     Dates: start: 20241020
  50. POLYETHYLENE GLYCOL 3350\POTASSIUM CHLORIDE\SODIUM BICARBONATE\SODIUM [Concomitant]
     Active Substance: POLYETHYLENE GLYCOL 3350\POTASSIUM CHLORIDE\SODIUM BICARBONATE\SODIUM CHLORIDE
     Dosage: UNK UNK, BID (2-3X SACHET TO BE TAKEN TWICE DAILY)
     Route: 065
     Dates: start: 20241020
  51. POLYETHYLENE GLYCOL 3350\POTASSIUM CHLORIDE\SODIUM BICARBONATE\SODIUM [Concomitant]
     Active Substance: POLYETHYLENE GLYCOL 3350\POTASSIUM CHLORIDE\SODIUM BICARBONATE\SODIUM CHLORIDE
     Dosage: UNK UNK, BID (2-3X SACHET TO BE TAKEN TWICE DAILY)
     Route: 065
     Dates: start: 20241020
  52. POLYETHYLENE GLYCOL 3350\POTASSIUM CHLORIDE\SODIUM BICARBONATE\SODIUM [Concomitant]
     Active Substance: POLYETHYLENE GLYCOL 3350\POTASSIUM CHLORIDE\SODIUM BICARBONATE\SODIUM CHLORIDE
     Dosage: UNK UNK, BID (2-3X SACHET TO BE TAKEN TWICE DAILY)
     Dates: start: 20241020
  53. LOSARTAN [Concomitant]
     Active Substance: LOSARTAN
     Indication: Ill-defined disorder
     Dosage: 1 DOSAGE FORM, QD (TAKE ONE DAILY)
     Dates: start: 20241020
  54. LOSARTAN [Concomitant]
     Active Substance: LOSARTAN
     Dosage: 1 DOSAGE FORM, QD (TAKE ONE DAILY)
     Route: 065
     Dates: start: 20241020
  55. LOSARTAN [Concomitant]
     Active Substance: LOSARTAN
     Dosage: 1 DOSAGE FORM, QD (TAKE ONE DAILY)
     Route: 065
     Dates: start: 20241020
  56. LOSARTAN [Concomitant]
     Active Substance: LOSARTAN
     Dosage: 1 DOSAGE FORM, QD (TAKE ONE DAILY)
     Dates: start: 20241020
  57. ALBUTEROL [Concomitant]
     Active Substance: ALBUTEROL
     Indication: Ill-defined disorder
  58. ALBUTEROL [Concomitant]
     Active Substance: ALBUTEROL
     Route: 065
  59. ALBUTEROL [Concomitant]
     Active Substance: ALBUTEROL
     Route: 065
  60. ALBUTEROL [Concomitant]
     Active Substance: ALBUTEROL
  61. SIMVASTATIN [Concomitant]
     Active Substance: SIMVASTATIN
     Indication: Ill-defined disorder
     Dosage: 1 DOSAGE FORM, PM (ONE TO BE TAKEN AT NIGHT)
     Dates: start: 20241020
  62. SIMVASTATIN [Concomitant]
     Active Substance: SIMVASTATIN
     Dosage: 1 DOSAGE FORM, PM (ONE TO BE TAKEN AT NIGHT)
     Route: 065
     Dates: start: 20241020
  63. SIMVASTATIN [Concomitant]
     Active Substance: SIMVASTATIN
     Dosage: 1 DOSAGE FORM, PM (ONE TO BE TAKEN AT NIGHT)
     Route: 065
     Dates: start: 20241020
  64. SIMVASTATIN [Concomitant]
     Active Substance: SIMVASTATIN
     Dosage: 1 DOSAGE FORM, PM (ONE TO BE TAKEN AT NIGHT)
     Dates: start: 20241020
  65. ACETAMINOPHEN [Concomitant]
     Active Substance: ACETAMINOPHEN
     Indication: Ill-defined disorder
  66. ACETAMINOPHEN [Concomitant]
     Active Substance: ACETAMINOPHEN
     Route: 065
  67. ACETAMINOPHEN [Concomitant]
     Active Substance: ACETAMINOPHEN
     Route: 065
  68. ACETAMINOPHEN [Concomitant]
     Active Substance: ACETAMINOPHEN

REACTIONS (2)
  - Tachycardia [Unknown]
  - Flushing [Unknown]
